FAERS Safety Report 20151991 (Version 1)
Quarter: 2021Q4

REPORT INFORMATION
  Report Type: Spontaneous
  Country: AR (occurrence: AR)
  Receive Date: 20211206
  Receipt Date: 20211206
  Transmission Date: 20220304
  Serious: No
  Sender: FDA-Public Use
  Company Number: AR-PFIZER INC-2021560569

PATIENT
  Age: 3 Year
  Sex: Female

DRUGS (2)
  1. GENOTROPIN [Suspect]
     Active Substance: SOMATROPIN
     Indication: Hypopituitarism
     Dosage: 0.1 TO 0.5 MG,7 TIMES PER WEEK
     Dates: start: 20210107, end: 20210511
  2. GENOTROPIN [Suspect]
     Active Substance: SOMATROPIN
     Dosage: 0.1 TO 0.5 MG,7 TIMES PER WEEK
     Dates: start: 20210107, end: 20210511

REACTIONS (5)
  - Drug dose omission by device [Unknown]
  - Poor quality device used [Unknown]
  - Incorrect dose administered by device [Unknown]
  - Device malfunction [Unknown]
  - Device occlusion [Unknown]

NARRATIVE: CASE EVENT DATE: 20210511
